FAERS Safety Report 7814680-1 (Version None)
Quarter: 2011Q4

REPORT INFORMATION
  Report Type: 
  Country: None (occurrence: None)
  Receive Date: 20111014
  Receipt Date: 20111003
  Transmission Date: 20120403
  Serious: Yes (Other)
  Sender: FDA-Public Use
  Company Number: DK-JNJFOC-20110308597

PATIENT
  Sex: Female

DRUGS (1)
  1. NICOTINE [Suspect]
     Indication: SMOKING CESSATION THERAPY
     Route: 048
     Dates: start: 20110103, end: 20110126

REACTIONS (3)
  - TOOTH INFECTION [None]
  - WRONG TECHNIQUE IN DRUG USAGE PROCESS [None]
  - DEVICE BREAKAGE [None]
